FAERS Safety Report 8715186 (Version 2)
Quarter: 2013Q1

REPORT INFORMATION
  Report Type: Spontaneous
  Country: BR (occurrence: BR)
  Receive Date: 20120809
  Receipt Date: 20130111
  Transmission Date: 20140127
  Serious: Yes (Death, Hospitalization, Other)
  Sender: FDA-Public Use
  Company Number: PHHY2012BR068682

PATIENT
  Sex: Male

DRUGS (3)
  1. DIOVAN [Suspect]
     Indication: VASCULAR GRAFT
     Dosage: 320 MG, DAILY
     Dates: start: 2004
  2. DIOVAN [Suspect]
     Dosage: 80 MG AT HOSPITAL
  3. CALTREN [Concomitant]

REACTIONS (6)
  - Pneumonia [Fatal]
  - Nosocomial infection [Fatal]
  - Cardiac disorder [Fatal]
  - Coma [Unknown]
  - Abasia [Unknown]
  - Asthenia [Unknown]
